FAERS Safety Report 5458533-5 (Version None)
Quarter: 2007Q3

REPORT INFORMATION
  Report Type: 
  Country: None (occurrence: None)
  Receive Date: 20070919
  Receipt Date: 20070907
  Transmission Date: 20080115
  Serious: Yes (Death)
  Sender: FDA-Public Use
  Company Number: HQWYE070407SEP07

PATIENT
  Age: 85 Year
  Sex: Male

DRUGS (3)
  1. AMIODARONE HCL [Suspect]
     Indication: VENTRICULAR TACHYCARDIA
     Dosage: UNSPECIFIED
     Route: 042
     Dates: start: 20070824
  2. AMIODARONE HCL [Suspect]
     Indication: VENTRICULAR FIBRILLATION
  3. SHINBIT [Concomitant]
     Indication: VENTRICULAR TACHYCARDIA
     Dosage: UNSPECIFIED
     Route: 042
     Dates: start: 20070801

REACTIONS (2)
  - DRUG INEFFECTIVE [None]
  - ELECTROCARDIOGRAM QT PROLONGED [None]
